FAERS Safety Report 6979351-2 (Version None)
Quarter: 2010Q3

REPORT INFORMATION
  Report Type: 
  Country: None (occurrence: None)
  Receive Date: 20100910
  Receipt Date: 20100910
  Transmission Date: 20110219
  Serious: Yes (Life-Threatening, Hospitalization, Disabling, Other)
  Sender: FDA-Public Use
  Company Number: None

PATIENT
  Age: 91 Year
  Sex: Female
  Weight: 44.4525 kg

DRUGS (1)
  1. RED BLOOD CELLS [Suspect]

REACTIONS (6)
  - APPARENT LIFE THREATENING EVENT [None]
  - ELECTROCARDIOGRAM CHANGE [None]
  - HAEMATOCRIT DECREASED [None]
  - MEDICATION ERROR [None]
  - MYOCARDIAL ISCHAEMIA [None]
  - SHOCK [None]
